FAERS Safety Report 9951837 (Version 5)
Quarter: 2015Q2

REPORT INFORMATION
  Report Type: Spontaneous
  Country: US (occurrence: US)
  Receive Date: 20140304
  Receipt Date: 20150513
  Transmission Date: 20150821
  Serious: Yes (Hospitalization)
  Sender: FDA-Public Use
  Company Number: US-BAYER-2014-031348

PATIENT
  Age: 33 Year
  Sex: Female
  Weight: 110 kg

DRUGS (9)
  1. SEREVENT DISKUS [Concomitant]
     Active Substance: SALMETEROL XINAFOATE
  2. MIRENA [Suspect]
     Active Substance: LEVONORGESTREL
     Indication: MENORRHAGIA
  3. IBUPROFEN. [Concomitant]
     Active Substance: IBUPROFEN
  4. ELOCON [Concomitant]
     Active Substance: MOMETASONE FUROATE
  5. FLOVENT [Concomitant]
     Active Substance: FLUTICASONE PROPIONATE
     Indication: ASTHMA
     Dosage: UNK
     Route: 045
     Dates: start: 20100619
  6. ALBUTEROL. [Concomitant]
     Active Substance: ALBUTEROL
  7. ADVAIR DISKUS [Concomitant]
     Active Substance: FLUTICASONE PROPIONATE\SALMETEROL XINAFOATE
  8. MIRENA [Suspect]
     Active Substance: LEVONORGESTREL
     Indication: CONTRACEPTION
     Dosage: 20 MCG/24HR, CONT
     Route: 015
     Dates: start: 20081102, end: 20100623
  9. COMBIVENT [Concomitant]
     Active Substance: ALBUTEROL SULFATE\IPRATROPIUM BROMIDE
     Indication: ASTHMA
     Dosage: 2 PUFF TWICE A DAY
     Route: 045
     Dates: start: 20100619

REACTIONS (10)
  - Ovarian cyst ruptured [None]
  - Infertility female [None]
  - Injury [None]
  - Drug ineffective [None]
  - Pain [None]
  - Depression [None]
  - Emotional distress [None]
  - Genital haemorrhage [None]
  - Uterine perforation [None]
  - Device difficult to use [None]

NARRATIVE: CASE EVENT DATE: 20100623
